FAERS Safety Report 8882662 (Version 2)
Quarter: 2012Q4

REPORT INFORMATION
  Report Type: Report from Study
  Country: US (occurrence: US)
  Receive Date: 20121105
  Receipt Date: 20121114
  Transmission Date: 20130627
  Serious: Yes (Hospitalization)
  Sender: FDA-Public Use
  Company Number: US-GLENMARK GENERICS INC.-2012GMK004269

PATIENT
  Age: 46 Year
  Sex: Male
  Weight: 90.7 kg

DRUGS (4)
  1. CALCIPOTRIENE [Suspect]
     Indication: PSORIASIS
     Dosage: UNK UNK, bid
     Route: 061
     Dates: start: 20121017, end: 20121102
  2. DOVONEX [Suspect]
     Indication: PSORIASIS
     Dosage: UNK UNK, bid
     Route: 061
     Dates: start: 20121017, end: 20121102
  3. BLINDED PLACEBO [Suspect]
     Indication: PSORIASIS
     Dosage: UNK UNK, bid
     Route: 061
     Dates: start: 20121017, end: 20121102
  4. LISINOPRIL [Concomitant]
     Indication: HYPERTENSION
     Dosage: 10 mg, qd
     Route: 048

REACTIONS (3)
  - Cellulitis [Recovered/Resolved]
  - Bursitis [Recovered/Resolved]
  - Alcohol poisoning [Recovered/Resolved]
